FAERS Safety Report 14650259 (Version 3)
Quarter: 2019Q3

REPORT INFORMATION
  Report Type: Report from Study
  Country: JP (occurrence: JP)
  Receive Date: 20180316
  Receipt Date: 20190809
  Transmission Date: 20191004
  Serious: Yes (Life-Threatening, Hospitalization)
  Sender: FDA-Public Use
  Company Number: JP-B.I. PHARMACEUTICALS,INC./RIDGEFIELD-2018-NB-001277

PATIENT
  Age: 74 Year
  Sex: Male
  Weight: 53.9 kg

DRUGS (9)
  1. SPIRIVA [Concomitant]
     Active Substance: TIOTROPIUM BROMIDE MONOHYDRATE
     Indication: PRODUCT USED FOR UNKNOWN INDICATION
     Route: 065
     Dates: end: 20160316
  2. BIBF 1120 [Suspect]
     Active Substance: NINTEDANIB
     Indication: IDIOPATHIC PULMONARY FIBROSIS
     Route: 048
     Dates: start: 20160308, end: 20160420
  3. ADALAT [Concomitant]
     Active Substance: NIFEDIPINE
     Indication: PRODUCT USED FOR UNKNOWN INDICATION
     Route: 065
     Dates: start: 20160812
  4. BIBF 1120 [Suspect]
     Active Substance: NINTEDANIB
     Route: 048
     Dates: start: 20160421, end: 20161010
  5. CARBOCISTEINE [Concomitant]
     Active Substance: CARBOCYSTEINE
     Indication: IDIOPATHIC PULMONARY FIBROSIS
     Route: 065
     Dates: start: 20130226, end: 20170124
  6. BAYASPIRIN [Concomitant]
     Active Substance: ASPIRIN
     Indication: PRODUCT USED FOR UNKNOWN INDICATION
     Route: 065
  7. ITOROL [Concomitant]
     Active Substance: ISOSORBIDE MONONITRATE
     Indication: PRODUCT USED FOR UNKNOWN INDICATION
     Route: 065
  8. LOSARTAN POTASSIUM. [Concomitant]
     Active Substance: LOSARTAN POTASSIUM
     Indication: PRODUCT USED FOR UNKNOWN INDICATION
     Route: 065
  9. RABEPRAZOLE NA [Concomitant]
     Active Substance: RABEPRAZOLE SODIUM
     Indication: PRODUCT USED FOR UNKNOWN INDICATION
     Route: 065

REACTIONS (8)
  - Decreased appetite [Recovered/Resolved]
  - Cholangitis [Recovered/Resolved]
  - Pneumonia bacterial [Recovered/Resolved]
  - Constipation [Recovered/Resolved]
  - Cough [Recovered/Resolved]
  - Pneumonia bacterial [Recovered/Resolved]
  - Bile duct stone [Recovered/Resolved]
  - Chronic respiratory failure [Unknown]

NARRATIVE: CASE EVENT DATE: 20160311
